FAERS Safety Report 9896136 (Version 1)
Quarter: 2014Q1

REPORT INFORMATION
  Report Type: Spontaneous
  Country: US (occurrence: US)
  Receive Date: 20140213
  Receipt Date: 20140213
  Transmission Date: 20141002
  Serious: No
  Sender: FDA-Public Use
  Company Number: US-BRISTOL-MYERS SQUIBB COMPANY-19728930

PATIENT
  Age: 49 Year
  Sex: Female
  Weight: 52.15 kg

DRUGS (7)
  1. ABATACEPT SUBQ INJECTION 125MG/ML [Suspect]
     Indication: RHEUMATOID ARTHRITIS
     Route: 058
     Dates: start: 20121205
  2. FISH OIL [Concomitant]
  3. MVI [Concomitant]
  4. ACIDOPHILUS [Concomitant]
  5. SYNTHROID [Concomitant]
  6. PAXIL [Concomitant]
  7. RESTASIS [Concomitant]

REACTIONS (1)
  - Paraesthesia [Not Recovered/Not Resolved]
